FAERS Safety Report 13748000 (Version 6)
Quarter: 2018Q2

REPORT INFORMATION
  Report Type: Spontaneous
  Country: US (occurrence: US)
  Receive Date: 20170713
  Receipt Date: 20180416
  Transmission Date: 20180711
  Serious: No
  Sender: FDA-Public Use
  Company Number: US-BIOGEN-2017BI00428711

PATIENT
  Age: 63 Year
  Sex: Female

DRUGS (1)
  1. TYSABRI [Suspect]
     Active Substance: NATALIZUMAB
     Indication: MULTIPLE SCLEROSIS
     Dosage: INFUSED OVER 1 HR
     Route: 042
     Dates: start: 20170619

REACTIONS (13)
  - Sciatic nerve injury [Unknown]
  - Amnesia [Not Recovered/Not Resolved]
  - Sensory disturbance [Unknown]
  - Multiple sclerosis relapse [Unknown]
  - Pruritus [Recovered/Resolved]
  - Insomnia [Unknown]
  - Anger [Unknown]
  - Sciatica [Recovered/Resolved]
  - Asthenia [Unknown]
  - Sleep disorder [Not Recovered/Not Resolved]
  - Restless legs syndrome [Unknown]
  - Fatigue [Not Recovered/Not Resolved]
  - Weight decreased [Not Recovered/Not Resolved]

NARRATIVE: CASE EVENT DATE: 20170626
